FAERS Safety Report 4559083-0 (Version None)
Quarter: 2005Q1

REPORT INFORMATION
  Report Type: 
  Country: None (occurrence: None)
  Receive Date: 20050119
  Receipt Date: 20050107
  Transmission Date: 20050727
  Serious: Yes (Death)
  Sender: FDA-Public Use
  Company Number: 2005EU000036

PATIENT
  Age: 44 Year
  Sex: Male

DRUGS (6)
  1. PROGRAF [Suspect]
     Indication: BONE MARROW TRANSPLANT
     Dosage: D
  2. MYCOPHENOLATE MOFETIL (MYCOPHENOLATE MOFETIL) [Concomitant]
  3. ANTITHYMOCYTE IMMUNOGLOBULIN [Concomitant]
  4. CORTICOSTEROIDS [Concomitant]
  5. DACLIZUMAB (DACLIZUMAB) [Concomitant]
  6. ETANERCEPT (ETANERCEPT) [Concomitant]

REACTIONS (1)
  - GRAFT VERSUS HOST DISEASE [None]
